FAERS Safety Report 11561696 (Version 1)
Quarter: 2015Q3

REPORT INFORMATION
  Report Type: Spontaneous
  Country: US (occurrence: US)
  Receive Date: 20150916
  Receipt Date: 20150916
  Transmission Date: 20151125
  Serious: No
  Sender: FDA-Public Use
  Company Number: US-ELI_LILLY_AND_COMPANY-US200811001339

PATIENT
  Sex: Female

DRUGS (4)
  1. FORTEO [Suspect]
     Active Substance: TERIPARATIDE
     Dates: start: 200710
  2. MICARDIS [Concomitant]
     Active Substance: TELMISARTAN
  3. ATENOLOL. [Concomitant]
     Active Substance: ATENOLOL
  4. SULAR [Concomitant]
     Active Substance: NISOLDIPINE

REACTIONS (2)
  - Cataract operation [Recovering/Resolving]
  - Cataract operation [Recovering/Resolving]

NARRATIVE: CASE EVENT DATE: 20081027
